FAERS Safety Report 4886641-6 (Version None)
Quarter: 2006Q1

REPORT INFORMATION
  Report Type: 
  Country: None (occurrence: None)
  Receive Date: 20060120
  Receipt Date: 20060111
  Transmission Date: 20060701
  Serious: Yes (Disabling, Other)
  Sender: FDA-Public Use
  Company Number: PHNU2006DE00516

PATIENT
  Sex: Female

DRUGS (2)
  1. ZOMETA [Suspect]
     Indication: BREAST CANCER METASTATIC
     Dosage: UNK, QMO
     Route: 042
     Dates: start: 20020101, end: 20050801
  2. CHEMOTHERAPEUTICS,OTHER [Concomitant]

REACTIONS (4)
  - BONE DISORDER [None]
  - HYPOAESTHESIA [None]
  - OSTEONECROSIS [None]
  - PAIN [None]
